FAERS Safety Report 5470680-0 (Version None)
Quarter: 2007Q3

REPORT INFORMATION
  Report Type: 
  Country: None (occurrence: None)
  Receive Date: 20070925
  Receipt Date: 20070830
  Transmission Date: 20080115
  Serious: Yes (Hospitalization)
  Sender: FDA-Public Use
  Company Number: 6301 /6037589

PATIENT
  Age: 52 Year
  Sex: Female

DRUGS (4)
  1. FUROSEMIDE [Suspect]
     Dosage: 40 MG (40 MG,1 IN 1 D)
  2. DIGOXIN [Suspect]
  3. SOTALOL HCL [Suspect]
     Indication: DRUG USE FOR UNKNOWN INDICATION
  4. ASPIRIN [Concomitant]

REACTIONS (3)
  - HYPOKALAEMIA [None]
  - HYPOMAGNESAEMIA [None]
  - TORSADE DE POINTES [None]
